FAERS Safety Report 9885695 (Version 3)
Quarter: 2014Q2

REPORT INFORMATION
  Report Type: Spontaneous
  Country: US (occurrence: US)
  Receive Date: 20140210
  Receipt Date: 20140515
  Transmission Date: 20141212
  Serious: No
  Sender: FDA-Public Use
  Company Number: US-009507513-1402USA004244

PATIENT
  Age: 57 Year
  Sex: Female
  Weight: 62.59 kg

DRUGS (6)
  1. OXYTROL FOR WOMEN [Suspect]
     Indication: INCONTINENCE
     Dosage: 1 DF, Q4D
     Route: 062
     Dates: start: 201311, end: 201312
  2. OXYTROL FOR WOMEN [Suspect]
     Indication: POLLAKIURIA
  3. VESICARE [Concomitant]
     Indication: INCONTINENCE
     Dosage: 5 MG, TIW
  4. ASPIRIN [Concomitant]
     Indication: PRODUCT USED FOR UNKNOWN INDICATION
     Dosage: 81 MG, TIW
  5. CALCIUM (UNSPECIFIED) (+) VITAMIN D (UNSPECIFIED) [Concomitant]
     Indication: PRODUCT USED FOR UNKNOWN INDICATION
     Dosage: 600 MG, QD
  6. OMEGA-3 MARINE TRIGLYCERIDES [Concomitant]
     Indication: PRODUCT USED FOR UNKNOWN INDICATION
     Dosage: 1000 MG, QD

REACTIONS (4)
  - Application site reaction [Recovered/Resolved]
  - Application site erythema [Recovered/Resolved]
  - Scar [Recovered/Resolved]
  - Off label use [Unknown]
